FAERS Safety Report 12621025 (Version 1)
Quarter: 2016Q3

REPORT INFORMATION
  Report Type: Spontaneous
  Country: US (occurrence: US)
  Receive Date: 20160804
  Receipt Date: 20160804
  Transmission Date: 20161109
  Serious: No
  Sender: FDA-Public Use
  Company Number: US-BAYER-2016-143014

PATIENT
  Age: 79 Year
  Sex: Male

DRUGS (2)
  1. MIRALAX [Suspect]
     Active Substance: POLYETHYLENE GLYCOL 3350
     Indication: COLONOSCOPY
     Dosage: DRINK AN 8OZ GLASS EVERY 15 MINUTES TILL 3/4 WAS GONE
     Route: 048
  2. DULCOLAX (BISACODYL) [Concomitant]
     Active Substance: BISACODYL
     Dosage: UNK, AT NOON

REACTIONS (4)
  - Wrong technique in product usage process [None]
  - Product use issue [None]
  - Off label use [None]
  - Drug prescribing error [None]
